FAERS Safety Report 23084667 (Version 1)
Quarter: 2023Q4

REPORT INFORMATION
  Report Type: Spontaneous
  Country: FR (occurrence: FR)
  Receive Date: 20231019
  Receipt Date: 20231019
  Transmission Date: 20240110
  Serious: Yes (Hospitalization, Other)
  Sender: FDA-Public Use
  Company Number: None

PATIENT
  Age: 70 Year
  Sex: Female
  Weight: 77 kg

DRUGS (4)
  1. PLAVIX [Suspect]
     Active Substance: CLOPIDOGREL BISULFATE
     Indication: Product used for unknown indication
     Dosage: 75 MG, QD
     Route: 048
  2. TOPIRAMATE [Suspect]
     Active Substance: TOPIRAMATE
     Indication: Epilepsy
     Dosage: 150 MG, BID
     Route: 048
  3. INNOVAIR [Suspect]
     Active Substance: BECLOMETHASONE DIPROPIONATE\FORMOTEROL
     Indication: Product used for unknown indication
     Dosage: 2 DF, QD
     Route: 055
  4. AERIUS (DESLORATADINE) [Suspect]
     Active Substance: DESLORATADINE
     Indication: Hypersensitivity
     Dosage: 5 MG, QD
     Route: 048

REACTIONS (2)
  - Visual field defect [Not Recovered/Not Resolved]
  - Axonal neuropathy [Not Recovered/Not Resolved]

NARRATIVE: CASE EVENT DATE: 20210101
